FAERS Safety Report 25758268 (Version 1)
Quarter: 2025Q3

REPORT INFORMATION
  Report Type: Spontaneous
  Country: GB (occurrence: GB)
  Receive Date: 20250904
  Receipt Date: 20250904
  Transmission Date: 20251021
  Serious: Yes (Other)
  Sender: TEVA
  Company Number: GB-MHRA-EMIS-3200-6da7ac2c-aeea-431b-96e0-f92bc3069c9c

PATIENT
  Age: 22 Year
  Sex: Male
  Weight: 70 kg

DRUGS (1)
  1. MONTELUKAST [Suspect]
     Active Substance: MONTELUKAST
     Indication: Asthma
     Dosage: ASTHMA PREVENTER
     Route: 065
     Dates: start: 20250328

REACTIONS (1)
  - Yellow skin [Recovered/Resolved]
